FAERS Safety Report 23218113 (Version 1)
Quarter: 2023Q4

REPORT INFORMATION
  Report Type: Report from Study
  Country: US (occurrence: None)
  Receive Date: 20231122
  Receipt Date: 20231122
  Transmission Date: 20240109
  Serious: Yes (Other)
  Sender: FDA-Public Use
  Company Number: 2023A261918

PATIENT
  Sex: Female

DRUGS (1)
  1. CALQUENCE [Suspect]
     Active Substance: ACALABRUTINIB
     Indication: Chronic lymphocytic leukaemia
     Route: 048
     Dates: start: 202309

REACTIONS (7)
  - Pulmonary pain [Unknown]
  - Influenza [Unknown]
  - Pyrexia [Unknown]
  - Dizziness [Unknown]
  - Pain in extremity [Unknown]
  - Fall [Unknown]
  - Laboratory test abnormal [Unknown]
